FAERS Safety Report 5981693-4 (Version None)
Quarter: 2008Q4

REPORT INFORMATION
  Report Type: 
  Country: None (occurrence: None)
  Receive Date: 20081202
  Receipt Date: 20081119
  Transmission Date: 20090506
  Serious: Yes (Disabling, Other)
  Sender: FDA-Public Use
  Company Number: 2008AP003152

PATIENT
  Age: 72 Year
  Sex: Female

DRUGS (8)
  1. AMIODARONE HCL [Suspect]
     Indication: ATRIAL FIBRILLATION
     Dosage: 200 MG;BID; 200 MG;QD; 200 MG;BID
  2. RISEDRONATE SODIUM [Concomitant]
  3. ALBUTEROL SULFATE [Concomitant]
  4. IPRATROPIUM BROMIDE [Concomitant]
  5. MOMETASONE FUROATE [Concomitant]
  6. WARFARIN SODIUM [Concomitant]
  7. DILTIAZEM [Concomitant]
  8. DIGOXIN [Concomitant]

REACTIONS (13)
  - ACTIVITIES OF DAILY LIVING IMPAIRED [None]
  - ATRIAL FIBRILLATION [None]
  - BLINDNESS UNILATERAL [None]
  - COLOUR BLINDNESS [None]
  - CONDITION AGGRAVATED [None]
  - DRUG INTOLERANCE [None]
  - IMPAIRED DRIVING ABILITY [None]
  - OPTIC ATROPHY [None]
  - OPTIC DISC DISORDER [None]
  - OPTIC ISCHAEMIC NEUROPATHY [None]
  - OPTIC NEUROPATHY [None]
  - PAPILLOEDEMA [None]
  - TREATMENT FAILURE [None]
